FAERS Safety Report 5502174-8 (Version None)
Quarter: 2008Q1

REPORT INFORMATION
  Report Type: 
  Country: None (occurrence: None)
  Receive Date: 20071030
  Receipt Date: 20071022
  Transmission Date: 20080703
  Serious: Yes (Other)
  Sender: FDA-Public Use
  Company Number: FR-ASTRAZENECA-2007CG01522

PATIENT
  Sex: Male

DRUGS (2)
  1. NEXIUM IV [Suspect]
     Route: 042
     Dates: start: 20071001, end: 20071001
  2. ENTERAL NUTRITION [Suspect]
     Dates: start: 20071001

REACTIONS (2)
  - GAMMA-GLUTAMYLTRANSFERASE INCREASED [None]
  - TRANSAMINASES INCREASED [None]
